FAERS Safety Report 11395257 (Version 1)
Quarter: 2015Q3

REPORT INFORMATION
  Report Type: Spontaneous
  Country: US (occurrence: US)
  Receive Date: 20150819
  Receipt Date: 20150819
  Transmission Date: 20151125
  Serious: Yes (Other)
  Sender: FDA-Public Use
  Company Number: US-MYLANLABS-2015M1027353

PATIENT

DRUGS (11)
  1. MAGNESIUM OXIDE. [Concomitant]
     Active Substance: MAGNESIUM OXIDE
     Route: 065
  2. ENOXAPARIN SODIUM. [Concomitant]
     Active Substance: ENOXAPARIN SODIUM
     Dosage: 100MG DAILY
     Route: 065
  3. PACLITAXEL. [Suspect]
     Active Substance: PACLITAXEL
     Indication: OVARIAN CANCER STAGE IV
     Dosage: 175 MG/M2
     Route: 065
  4. CARBOPLATIN. [Suspect]
     Active Substance: CARBOPLATIN
     Indication: OVARIAN CANCER STAGE IV
     Dosage: AREA UNDER THE CURVE OF 5
     Route: 065
  5. HYDROMORPHONE [Suspect]
     Active Substance: HYDROMORPHONE
     Indication: BONE PAIN
     Dosage: 1-2MG EVERY 4-6 HOURS AS NEEDED
     Route: 065
  6. PEGFILGRASTIM [Suspect]
     Active Substance: PEGFILGRASTIM
     Indication: NEUTROPENIA
     Route: 065
  7. FAMOTIDINE. [Concomitant]
     Active Substance: FAMOTIDINE
     Route: 065
  8. OMEPRAZOLE. [Concomitant]
     Active Substance: OMEPRAZOLE
     Dosage: 20MG DAILY INCREASED TO 35MG DAILY
     Route: 065
  9. LOSARTAN. [Concomitant]
     Active Substance: LOSARTAN
     Dosage: 50MG DAILY
     Route: 065
  10. SENNA [Concomitant]
     Active Substance: SENNA LEAF\SENNOSIDES\SENNOSIDES A AND B
     Route: 065
  11. METOPROLOL SUCCINATE. [Concomitant]
     Active Substance: METOPROLOL SUCCINATE
     Dosage: 50MG DAILY
     Route: 065

REACTIONS (4)
  - Confusional state [Unknown]
  - Bone pain [Unknown]
  - Sedation [Unknown]
  - Neutropenia [Unknown]
